FAERS Safety Report 7739898-8 (Version None)
Quarter: 2011Q3

REPORT INFORMATION
  Report Type: 
  Country: None (occurrence: None)
  Receive Date: 20110909
  Receipt Date: 20110906
  Transmission Date: 20111222
  Serious: Yes (Life-Threatening, Hospitalization)
  Sender: FDA-Public Use
  Company Number: PHHO2008US14467

PATIENT
  Sex: Male

DRUGS (3)
  1. ZORTRESS [Suspect]
     Indication: IMMUNOSUPPRESSION
     Dosage: 1.5 MG, BID
     Route: 048
     Dates: start: 20060801
  2. NEORAL [Suspect]
     Dosage: 100 MG AM, 75 MG PM
     Route: 048
     Dates: start: 20090213
  3. NEORAL [Suspect]
     Dosage: UNK
     Route: 048
     Dates: start: 20060815

REACTIONS (12)
  - CONCOMITANT DISEASE PROGRESSION [None]
  - PYREXIA [None]
  - RENAL FAILURE ACUTE [None]
  - DEHYDRATION [None]
  - ALVEOLITIS [None]
  - OROPHARYNGEAL PAIN [None]
  - TACHYCARDIA [None]
  - HYPERKALAEMIA [None]
  - COUGH [None]
  - PULMONARY CONGESTION [None]
  - NEPHROPATHY TOXIC [None]
  - BRONCHIAL HAEMORRHAGE [None]
